FAERS Safety Report 7602028-7 (Version None)
Quarter: 2011Q3

REPORT INFORMATION
  Report Type: 
  Country: None (occurrence: None)
  Receive Date: 20110701
  Receipt Date: 20100520
  Transmission Date: 20111222
  Serious: Yes (Other)
  Sender: FDA-Public Use
  Company Number: 245367USA

PATIENT
  Sex: Female

DRUGS (2)
  1. WARFARIN SODIUM [Concomitant]
  2. NORDETTE-21 [Suspect]
     Indication: CONTRACEPTION
     Dosage: ORAL
     Route: 048
     Dates: start: 19970101

REACTIONS (3)
  - PULMONARY EMBOLISM [None]
  - VAGINAL HAEMORRHAGE [None]
  - GALLBLADDER DISORDER [None]
